FAERS Safety Report 16841058 (Version 9)
Quarter: 2021Q2

REPORT INFORMATION
  Report Type: Spontaneous
  Country: US (occurrence: US)
  Receive Date: 20190923
  Receipt Date: 20210409
  Transmission Date: 20210716
  Serious: Yes (Hospitalization, Other)
  Sender: FDA-Public Use
  Company Number: US-SA-2019SA260698

PATIENT
  Age: 43 Year
  Sex: Female

DRUGS (2)
  1. FABRAZYME [Suspect]
     Active Substance: AGALSIDASE BETA
     Indication: FABRY^S DISEASE
     Dosage: 85 MG, QOW
     Route: 041
     Dates: start: 20190727
  2. FABRAZYME [Suspect]
     Active Substance: AGALSIDASE BETA
     Dosage: 42.5 MG, QOW
     Route: 041

REACTIONS (7)
  - Illness [Unknown]
  - Intentional dose omission [Unknown]
  - Infusion site swelling [Unknown]
  - Hypersensitivity [Unknown]
  - Lyme disease [Unknown]
  - Exposure during pregnancy [Unknown]
  - Rash [Unknown]

NARRATIVE: CASE EVENT DATE: 2019
